FAERS Safety Report 23916871 (Version 1)
Quarter: 2024Q2

REPORT INFORMATION
  Report Type: Spontaneous
  Country: US (occurrence: US)
  Receive Date: 20240529
  Receipt Date: 20240529
  Transmission Date: 20240716
  Serious: No
  Sender: FDA-Public Use
  Company Number: US-MIRATI-MT2024PM06692

PATIENT

DRUGS (1)
  1. KRAZATI [Suspect]
     Active Substance: ADAGRASIB
     Indication: Product used for unknown indication
     Dosage: UNK
     Dates: start: 2023

REACTIONS (3)
  - Alopecia [Unknown]
  - Alopecia [Unknown]
  - Thyroid disorder [Unknown]

NARRATIVE: CASE EVENT DATE: 20240101
